FAERS Safety Report 6915969-0 (Version None)
Quarter: 2010Q3

REPORT INFORMATION
  Report Type: 
  Country: None (occurrence: None)
  Receive Date: 20100809
  Receipt Date: 20100809
  Transmission Date: 20110219
  Serious: Yes (Hospitalization)
  Sender: FDA-Public Use
  Company Number: None

PATIENT
  Age: 79 Year
  Sex: Female
  Weight: 72 kg

DRUGS (19)
  1. PRAVASTATIN [Suspect]
     Indication: HYPERCHOLESTEROLAEMIA
     Dosage: 80 MG DAILY PO
     Route: 048
  2. INSULIN GLARGIN [Concomitant]
  3. INSULIN ASPART [Concomitant]
  4. VALSARTAN [Concomitant]
  5. METOPROLOL TARTRATE [Concomitant]
  6. PRAVASTATIN [Concomitant]
  7. FENOFIBRATE [Concomitant]
  8. FUROSEMIDE [Concomitant]
  9. POTASSIUM CHLORIDE [Concomitant]
  10. PANTOPRAZOLE [Concomitant]
  11. COCHICINE [Concomitant]
  12. PREGABALIN [Concomitant]
  13. CLOPIDOGREL [Concomitant]
  14. ASPIRIN [Concomitant]
  15. CYCLOBENZAPRINE [Concomitant]
  16. MULTI-VITAMIN [Concomitant]
  17. CALCIUM SUPPLEMENT [Concomitant]
  18. EZETIMIBE [Concomitant]
  19. TRIMETHOPRIM + SULFAMETHOXAZOLE [Concomitant]

REACTIONS (6)
  - ASTHENIA [None]
  - FALL [None]
  - HALLUCINATION [None]
  - MENTAL STATUS CHANGES [None]
  - RENAL FAILURE ACUTE [None]
  - RHABDOMYOLYSIS [None]
